FAERS Safety Report 17216928 (Version 1)
Quarter: 2019Q4

REPORT INFORMATION
  Report Type: Spontaneous
  Country: PR (occurrence: PR)
  Receive Date: 20191231
  Receipt Date: 20191231
  Transmission Date: 20200122
  Serious: Yes (Hospitalization, Other)
  Sender: FDA-Public Use
  Company Number: PR-PFIZER INC-2019557731

PATIENT
  Age: 49 Year
  Sex: Female
  Weight: 88 kg

DRUGS (1)
  1. IBRANCE [Suspect]
     Active Substance: PALBOCICLIB
     Indication: BREAST CANCER FEMALE
     Dosage: 125 MG, CYCLIC (1 CAPSULE DAILY ON 21 DAYS AND OFF 7 DAYS)
     Route: 048
     Dates: start: 20191112, end: 2019

REACTIONS (5)
  - Diarrhoea [Unknown]
  - Intestinal haemorrhage [Unknown]
  - Abdominal pain upper [Unknown]
  - Gastrointestinal inflammation [Unknown]
  - Fatigue [Unknown]

NARRATIVE: CASE EVENT DATE: 2019
